FAERS Safety Report 11484548 (Version 1)
Quarter: 2015Q3

REPORT INFORMATION
  Report Type: Spontaneous
  Country: US (occurrence: US)
  Receive Date: 20150909
  Receipt Date: 20150909
  Transmission Date: 20151125
  Serious: No
  Sender: FDA-Public Use
  Company Number: US-JAZZ-2014-US-017334

PATIENT
  Age: 33 Year
  Sex: Female

DRUGS (2)
  1. XYREM [Suspect]
     Active Substance: SODIUM OXYBATE
     Indication: HYPERSOMNIA
     Dosage: 4.5 G, BID
     Route: 048
     Dates: start: 201411, end: 2015
  2. XYREM [Suspect]
     Active Substance: SODIUM OXYBATE
     Dosage: 0.5 G, QD
     Route: 048

REACTIONS (6)
  - Depressed mood [Unknown]
  - Vision blurred [Unknown]
  - Inappropriate schedule of drug administration [Unknown]
  - Depression [Unknown]
  - Unevaluable event [Unknown]
  - Product use issue [Unknown]

NARRATIVE: CASE EVENT DATE: 201411
